FAERS Safety Report 11848860 (Version 2)
Quarter: 2015Q4

REPORT INFORMATION
  Report Type: Report from Study
  Country: IT (occurrence: IT)
  Receive Date: 20151218
  Receipt Date: 20151221
  Transmission Date: 20160305
  Serious: Yes (Life-Threatening)
  Sender: FDA-Public Use
  Company Number: IT-BAYER-2014-186817

PATIENT
  Age: 79 Year
  Sex: Male
  Weight: 70 kg

DRUGS (8)
  1. DORZOLAMIDE HYDROCHLORIDE. [Concomitant]
     Active Substance: DORZOLAMIDE HYDROCHLORIDE
     Indication: GLAUCOMA
     Dosage: 1 DROP
  2. LORATADINE. [Concomitant]
     Active Substance: LORATADINE
     Indication: ERYTHEMA
     Dosage: DAILY DOSE 10 MG
     Dates: start: 20140619
  3. ALIZAPRIDE [Concomitant]
     Active Substance: ALIZAPRIDE
     Indication: GLAUCOMA
     Dosage: 1 DROP
  4. PRIMOVIST [Suspect]
     Active Substance: GADOXETATE DISODIUM
     Dosage: 7 ML/DAY
     Route: 042
     Dates: start: 20140219, end: 20140219
  5. YTTRIUM (90 Y) [Suspect]
     Active Substance: YTTRIUM Y-90
     Dosage: TOTAL DOSE 1.64 GBQ
     Route: 013
     Dates: start: 20140325, end: 20140506
  6. THIAMAZOL [Concomitant]
     Active Substance: METHIMAZOLE
     Indication: HYPERTHYROIDISM
     Dosage: DAILY DOSE 10 MG
     Dates: start: 20140621
  7. SORAFENIB (RAF KINASE INHIBITOR) [Suspect]
     Active Substance: SORAFENIB
     Indication: HEPATOCELLULAR CARCINOMA
     Dosage: 400 MG, QOD
     Route: 048
     Dates: start: 20140509, end: 20141217
  8. PROPANOLOL [Concomitant]
     Active Substance: PROPRANOLOL HYDROCHLORIDE
     Indication: HYPERTENSION
     Dosage: DAILY DOSE 20 MG
     Dates: start: 20140621

REACTIONS (4)
  - Alanine aminotransferase increased [Not Recovered/Not Resolved]
  - Aspartate aminotransferase increased [Not Recovered/Not Resolved]
  - Gamma-glutamyltransferase increased [Not Recovered/Not Resolved]
  - Blood alkaline phosphatase increased [Not Recovered/Not Resolved]

NARRATIVE: CASE EVENT DATE: 20141121
